FAERS Safety Report 9383704 (Version 1)
Quarter: 2013Q3

REPORT INFORMATION
  Report Type: Spontaneous
  Country: DE (occurrence: DE)
  Receive Date: 20130704
  Receipt Date: 20130704
  Transmission Date: 20140515
  Serious: Yes (Life-Threatening, Hospitalization)
  Sender: FDA-Public Use
  Company Number: DE-JNJFOC-20130609149

PATIENT
  Age: 82 Year
  Sex: Male
  Weight: 50 kg

DRUGS (1)
  1. XARELTO [Suspect]
     Indication: ATRIAL FIBRILLATION
     Route: 048

REACTIONS (3)
  - Gastrointestinal haemorrhage [Unknown]
  - Anaemia [Unknown]
  - Splenic vein thrombosis [Unknown]
